FAERS Safety Report 8510449-3 (Version None)
Quarter: 2012Q3

REPORT INFORMATION
  Report Type: 
  Country: None (occurrence: None)
  Receive Date: 20120715
  Receipt Date: 20120709
  Transmission Date: 20120928
  Serious: Yes (Death, Hospitalization)
  Sender: FDA-Public Use
  Company Number: CH-TEVA-322336ISR

PATIENT
  Age: 73 Year
  Sex: Male

DRUGS (13)
  1. LENALIDOMIDE [Suspect]
     Route: 048
     Dates: start: 20120131
  2. BENDAMUSTINE HYDROCHLORIDE [Suspect]
     Indication: B-CELL LYMPHOMA
     Dosage: 140 MILLIGRAM;
     Route: 042
     Dates: start: 20111219
  3. FRAGMIN [Concomitant]
     Dates: start: 20120218
  4. FRANIFORTE [Concomitant]
     Route: 058
     Dates: start: 20120207, end: 20120217
  5. RITUXIMAB [Suspect]
     Indication: B-CELL LYMPHOMA
     Route: 042
     Dates: start: 20111219
  6. SOLU-CORTEF [Concomitant]
     Dosage: DAY 1 TO DAY 15
     Route: 037
     Dates: start: 20111219
  7. RITUXIMAB [Suspect]
     Route: 042
     Dates: start: 20120213
  8. DEPOCYTE [Concomitant]
     Dosage: DAY 1 TO DAY 15
     Route: 037
     Dates: start: 20111219
  9. ASPIRIN [Concomitant]
     Route: 048
     Dates: start: 20120206
  10. BENDAMUSTINE HYDROCHLORIDE [Suspect]
     Route: 042
     Dates: start: 20120214
  11. SOLU-CORTEF [Concomitant]
     Route: 037
     Dates: start: 20120103
  12. LENALIDOMIDE [Suspect]
     Indication: B-CELL LYMPHOMA
     Route: 048
     Dates: start: 20111219
  13. DEPOCYTE [Concomitant]
     Route: 037
     Dates: start: 20120103

REACTIONS (11)
  - HEADACHE [None]
  - ARACHNOIDITIS [None]
  - BRONCHOPNEUMONIA [None]
  - DIARRHOEA [None]
  - VITREOUS HAEMORRHAGE [None]
  - RESPIRATORY FAILURE [None]
  - PNEUMONIA [None]
  - ARRHYTHMIA SUPRAVENTRICULAR [None]
  - NODAL ARRHYTHMIA [None]
  - ATRIAL FLUTTER [None]
  - VOMITING [None]
